FAERS Safety Report 25424362 (Version 1)
Quarter: 2025Q2

REPORT INFORMATION
  Report Type: Spontaneous
  Country: US (occurrence: US)
  Receive Date: 20250611
  Receipt Date: 20250611
  Transmission Date: 20250717
  Serious: No
  Sender: SANOFI AVENTIS
  Company Number: US-SA-2025SA164102

PATIENT
  Age: 73 Year
  Sex: Female

DRUGS (1)
  1. LOVENOX [Suspect]
     Active Substance: ENOXAPARIN SODIUM
     Indication: Splenic infarction
     Dosage: 75 MG, BID (TWO TIMES EVERY DAY)
     Route: 058

REACTIONS (1)
  - Off label use [Unknown]
